FAERS Safety Report 4600425-5 (Version None)
Quarter: 2005Q1

REPORT INFORMATION
  Report Type: 
  Country: None (occurrence: None)
  Receive Date: 20050304
  Receipt Date: 20050225
  Transmission Date: 20050727
  Serious: Yes (Hospitalization)
  Sender: FDA-Public Use
  Company Number: MEDI-0002931

PATIENT
  Age: 1 Month
  Sex: Male
  Weight: 2.01 kg

DRUGS (1)
  1. SYNAGIS [Suspect]
     Indication: ANTIVIRAL PROPHYLAXIS
     Dosage: 28 MG, 1 IN 30 D, INTRAMUSCULAR
     Route: 030
     Dates: start: 20050222, end: 20050222

REACTIONS (3)
  - EYE SWELLING [None]
  - FACE OEDEMA [None]
  - RASH ERYTHEMATOUS [None]
